FAERS Safety Report 6985404-5 (Version None)
Quarter: 2010Q3

REPORT INFORMATION
  Report Type: 
  Country: None (occurrence: None)
  Receive Date: 20100915
  Receipt Date: 20100908
  Transmission Date: 20110219
  Serious: Yes (Hospitalization)
  Sender: FDA-Public Use
  Company Number: A0761162A

PATIENT
  Age: 56 Year
  Sex: Male
  Weight: 98.6 kg

DRUGS (2)
  1. ROSIGLITAZONE MALEATE [Suspect]
     Indication: DIABETES MELLITUS
     Dosage: 8MG PER DAY
     Route: 048
     Dates: start: 20060701, end: 20070620
  2. GEMFIBROZIL [Concomitant]

REACTIONS (4)
  - AORTIC ANEURYSM [None]
  - HEART INJURY [None]
  - HYPERTENSION [None]
  - ISCHAEMIC STROKE [None]
